FAERS Safety Report 10338690 (Version 1)
Quarter: 2014Q3

REPORT INFORMATION
  Report Type: Spontaneous
  Country: GB (occurrence: None)
  Receive Date: 20140721
  Receipt Date: 20140721
  Transmission Date: 20150326
  Serious: Yes (Other)
  Sender: FDA-Public Use
  Company Number: AUR-APL-2014-07600

PATIENT
  Age: 21 Year
  Sex: Male
  Weight: 76.2 kg

DRUGS (1)
  1. FINASTERIDE. [Suspect]
     Active Substance: FINASTERIDE
     Indication: PRODUCT USED FOR UNKNOWN INDICATION
     Route: 048
     Dates: start: 20100101, end: 20100301

REACTIONS (4)
  - Fat redistribution [None]
  - Premature ageing [None]
  - Psychological trauma [None]
  - Collagen disorder [None]
